FAERS Safety Report 14029697 (Version 2)
Quarter: 2017Q4

REPORT INFORMATION
  Report Type: Spontaneous
  Country: US (occurrence: US)
  Receive Date: 20170930
  Receipt Date: 20171010
  Transmission Date: 20180321
  Serious: No
  Sender: FDA-Public Use
  Company Number: US-SA-2017SA130661

PATIENT
  Age: 35 Year
  Sex: Female

DRUGS (7)
  1. PARACETAMOL/CODEINE PHOSPHATE [Concomitant]
  2. NAPROXEN. [Concomitant]
     Active Substance: NAPROXEN
  3. VITAMIN D3 [Concomitant]
     Active Substance: CHOLECALCIFEROL
  4. WELLBUTRIN [Concomitant]
     Active Substance: BUPROPION HYDROCHLORIDE
  5. AMITRIPTYLINE HYDROCHLORIDE. [Concomitant]
     Active Substance: AMITRIPTYLINE HYDROCHLORIDE
  6. AUBAGIO [Suspect]
     Active Substance: TERIFLUNOMIDE
     Indication: MULTIPLE SCLEROSIS
     Route: 048
  7. VITAMIN B12 [Concomitant]
     Active Substance: CYANOCOBALAMIN

REACTIONS (5)
  - Hypokinesia [Unknown]
  - Condition aggravated [Unknown]
  - Dysstasia [Unknown]
  - Asthenia [Unknown]
  - Sensory loss [Unknown]
